FAERS Safety Report 5909296-8 (Version None)
Quarter: 2008Q4

REPORT INFORMATION
  Report Type: 
  Country: None (occurrence: None)
  Receive Date: 20081001
  Receipt Date: 20080924
  Transmission Date: 20090506
  Serious: Yes (Other)
  Sender: FDA-Public Use
  Company Number: TCI2008A04894

PATIENT
  Age: 51 Year
  Sex: Female

DRUGS (5)
  1. ACTOS [Suspect]
     Indication: DIABETES MELLITUS
     Dosage: 15 MG (15 MG,1 D)
     Route: 048
     Dates: start: 20080908, end: 20080913
  2. AMLODIPINE BESYLATE [Concomitant]
  3. MUCODYNE (CARBOCISTEINE) [Concomitant]
  4. MEDICON (DEXTROMETHORPHAN HYDROBROMIDE) [Concomitant]
  5. BISOLVON (BROMHEXINE HYDROCHLORIDE) [Concomitant]

REACTIONS (1)
  - INTERSTITIAL LUNG DISEASE [None]
